FAERS Safety Report 6434302-4 (Version None)
Quarter: 2009Q4

REPORT INFORMATION
  Report Type: 
  Country: None (occurrence: None)
  Receive Date: 20091110
  Receipt Date: 20091105
  Transmission Date: 20100525
  Serious: Yes (Disabling)
  Sender: FDA-Public Use
  Company Number: US-ROXANE LABORATORIES, INC.-2009-RO-00607RO

PATIENT
  Sex: Male

DRUGS (5)
  1. OXYCODONE AND ACETAMINOPHEN [Suspect]
     Indication: PAIN
  2. OXYCODONE AND ACETAMINOPHEN [Suspect]
     Indication: HEADACHE
  3. SPIRIVA [Suspect]
     Indication: DYSPNOEA
     Dosage: 18 MCG
     Route: 055
     Dates: start: 20080101
  4. ROXICODONE [Suspect]
     Indication: ANGIOPATHY
  5. ROXICODONE [Suspect]

REACTIONS (13)
  - ABDOMINAL DISCOMFORT [None]
  - ANXIETY DISORDER [None]
  - DEAFNESS [None]
  - DRUG INEFFECTIVE [None]
  - DYSPNOEA [None]
  - FEELING ABNORMAL [None]
  - MALAISE [None]
  - SKIN DISORDER [None]
  - SOMNOLENCE [None]
  - STRESS [None]
  - THINKING ABNORMAL [None]
  - TINNITUS [None]
  - TOXIC SHOCK SYNDROME [None]
